FAERS Safety Report 8927471 (Version 2)
Quarter: 2013Q2

REPORT INFORMATION
  Report Type: Report from Study
  Country: JP (occurrence: JP)
  Receive Date: 20121127
  Receipt Date: 20130402
  Transmission Date: 20140414
  Serious: Yes (Death, Life-Threatening, Hospitalization, Other)
  Sender: FDA-Public Use
  Company Number: PHHY2012JP069657

PATIENT
  Age: 80 Year
  Sex: Female

DRUGS (4)
  1. AFINITOR [Suspect]
     Indication: PANCREATIC NEUROENDOCRINE TUMOUR
     Dosage: 10 MG, DAILY
     Route: 048
     Dates: start: 20120214, end: 20120510
  2. AFINITOR [Suspect]
     Dosage: 5 MG, DAILY
     Route: 048
     Dates: start: 20120602
  3. FARMORUBICIN [Concomitant]
     Indication: PANCREATIC NEUROENDOCRINE TUMOUR
     Dates: start: 20100407, end: 20120201
  4. HICALIQ [Concomitant]
     Indication: PANCREATIC NEUROENDOCRINE TUMOUR
     Dosage: 500 UL, UNK
     Dates: start: 20120511, end: 20120802

REACTIONS (13)
  - Cardiac failure [Fatal]
  - Orthopnoea [Fatal]
  - Hypertension [Fatal]
  - Pulmonary oedema [Fatal]
  - Left ventricular hypertrophy [Fatal]
  - Malignant neoplasm progression [Fatal]
  - Bronchopneumonia [Fatal]
  - Interstitial lung disease [Recovering/Resolving]
  - Chills [Recovering/Resolving]
  - Cough [Recovering/Resolving]
  - Dyspnoea [Recovering/Resolving]
  - Blood glucose increased [Unknown]
  - Blood phosphorus decreased [Unknown]
